FAERS Safety Report 7115720-8 (Version None)
Quarter: 2010Q4

REPORT INFORMATION
  Report Type: 
  Country: None (occurrence: None)
  Receive Date: 20101122
  Receipt Date: 20101112
  Transmission Date: 20110411
  Serious: Yes (Life-Threatening, Hospitalization, Disabling)
  Sender: FDA-Public Use
  Company Number: CH-PFIZER INC-2010152976

PATIENT
  Age: 71 Year
  Sex: Male
  Weight: 57 kg

DRUGS (13)
  1. PANTOPRAZOLE SODIUM [Suspect]
     Indication: PROPHYLAXIS
     Dosage: 40 MG, 1X/DAY
     Dates: start: 20091013, end: 20100108
  2. NOVALGIN [Suspect]
     Indication: PYREXIA
     Dosage: 1000 MG, 4X/DAY
     Dates: start: 20091013, end: 20091225
  3. NOVALGIN [Suspect]
     Indication: PAIN
  4. VANCOMYCIN HYDROCHLORIDE [Concomitant]
     Dosage: UNK
     Dates: start: 20091025, end: 20091121
  5. MEROPENEM [Concomitant]
     Dosage: UNK
     Dates: start: 20091025, end: 20091102
  6. CIPROFLOXACIN [Concomitant]
     Dosage: UNK
     Dates: start: 20091101, end: 20091116
  7. TOBRAMYCIN [Concomitant]
     Dosage: UNK
     Dates: start: 20091101, end: 20091116
  8. DAPTOMYCIN [Concomitant]
  9. CEFTRIAXONE [Concomitant]
  10. AMOXICILLIN AND CLAVULANATE POTASSIUM [Concomitant]
  11. FLUCONAZOLE [Concomitant]
  12. ATENOLOL [Concomitant]
  13. ACETYLSALICYLIC ACID [Concomitant]

REACTIONS (3)
  - DRUG RASH WITH EOSINOPHILIA AND SYSTEMIC SYMPTOMS [None]
  - RENAL FAILURE ACUTE [None]
  - SEPSIS [None]
